FAERS Safety Report 11051027 (Version 2)
Quarter: 2015Q2

REPORT INFORMATION
  Report Type: Spontaneous
  Country: US (occurrence: None)
  Receive Date: 20150417
  Receipt Date: 20150629
  Transmission Date: 20150821
  Serious: Yes (Other)
  Sender: FDA-Public Use
  Company Number: 2015-11052

PATIENT
  Age: 79 Year
  Sex: Female

DRUGS (3)
  1. BREO ELLIPTA INHALER (FLUTICASONE FUROATE,  VILANTEROL TRIFENATATE) [Concomitant]
  2. EYLEA [Suspect]
     Active Substance: AFLIBERCEPT
     Indication: NEOVASCULAR AGE-RELATED MACULAR DEGENERATION
     Dosage: MONTHLY INJECTION TO THE LEFT EYE (OS), INTRAOCULAR
     Route: 031
     Dates: start: 2014
  3. INDERAL LA [Concomitant]
     Active Substance: PROPRANOLOL HYDROCHLORIDE

REACTIONS (3)
  - Pulmonary hypertension [None]
  - Gait disturbance [None]
  - Muscular weakness [None]

NARRATIVE: CASE EVENT DATE: 201412
